FAERS Safety Report 7180418-7 (Version None)
Quarter: 2010Q4

REPORT INFORMATION
  Report Type: 
  Country: None (occurrence: None)
  Receive Date: 20101221
  Receipt Date: 20101214
  Transmission Date: 20110411
  Serious: Yes (Hospitalization)
  Sender: FDA-Public Use
  Company Number: B0689088A

PATIENT
  Sex: Female

DRUGS (4)
  1. ZOPHREN [Suspect]
     Indication: VOMITING
     Dosage: 8MG PER DAY
     Route: 042
     Dates: start: 20101104, end: 20101104
  2. ENDOXAN [Suspect]
     Indication: BREAST CANCER
     Dosage: 780MG PER DAY
     Route: 042
     Dates: start: 20101104, end: 20101104
  3. FLUOROURACIL [Suspect]
     Indication: BREAST CANCER
     Dosage: 780MG PER DAY
     Route: 042
     Dates: start: 20101104, end: 20101104
  4. FARMORUBICINE [Suspect]
     Indication: BREAST CANCER
     Dosage: 156MG PER DAY
     Route: 042
     Dates: start: 20101104, end: 20101104

REACTIONS (2)
  - ISCHAEMIC STROKE [None]
  - MALAISE [None]
